FAERS Safety Report 24531147 (Version 2)
Quarter: 2024Q4

REPORT INFORMATION
  Report Type: Report from Study
  Country: US (occurrence: US)
  Receive Date: 20241022
  Receipt Date: 20241113
  Transmission Date: 20250115
  Serious: Yes (Death, Other)
  Sender: ACADIA PHARMACEUTICALS
  Company Number: US-ACADIA PHARMACEUTICALS INC.-ACA-2024-PIM-006387

PATIENT
  Sex: Male

DRUGS (5)
  1. NUPLAZID [Suspect]
     Active Substance: PIMAVANSERIN TARTRATE
     Indication: Parkinson^s disease
     Dosage: 34 MILLIGRAM, QD
     Route: 048
     Dates: start: 201911, end: 20241007
  2. SINEMET [Concomitant]
     Active Substance: CARBIDOPA\LEVODOPA
  3. LISINOPRIL [Concomitant]
     Active Substance: LISINOPRIL
  4. RASAGILINE [Concomitant]
     Active Substance: RASAGILINE
  5. METOPROLOL [Concomitant]
     Active Substance: METOPROLOL

REACTIONS (1)
  - Cardiac failure congestive [Recovered/Resolved]
